FAERS Safety Report 9223100 (Version 1)
Quarter: 2013Q2

REPORT INFORMATION
  Report Type: Spontaneous
  Country: US (occurrence: US)
  Receive Date: 20130410
  Receipt Date: 20130410
  Transmission Date: 20140414
  Serious: Yes (Other)
  Sender: FDA-Public Use
  Company Number: PHEH2013US007951

PATIENT
  Sex: Female

DRUGS (2)
  1. EXFORGE [Suspect]
     Dosage: 1 DF (160 MG VALS AND 5 MG AMLO), ONCE DAILY
     Route: 048
  2. PLAVIX [Concomitant]

REACTIONS (2)
  - Throat cancer [Unknown]
  - Speech disorder [Unknown]
